FAERS Safety Report 23421773 (Version 1)
Quarter: 2024Q1

REPORT INFORMATION
  Report Type: Spontaneous
  Country: FR (occurrence: FR)
  Receive Date: 20240119
  Receipt Date: 20240119
  Transmission Date: 20240410
  Serious: Yes (Other)
  Sender: FDA-Public Use
  Company Number: FR-BIOCON-BBL2023001935

PATIENT

DRUGS (5)
  1. LEUCOVORIN CALCIUM [Suspect]
     Active Substance: LEUCOVORIN CALCIUM
     Indication: Cholangiocarcinoma
     Dosage: Q2W (200 MG/M2, Q2W (OVER 120 MIN)
     Route: 042
  2. FLUOROURACIL [Suspect]
     Active Substance: FLUOROURACIL
     Indication: Cholangiocarcinoma
     Dosage: Q2W (400 MG/M2, Q2W)
     Route: 042
  3. FLUOROURACIL [Suspect]
     Active Substance: FLUOROURACIL
     Dosage: Q2W (2400 MG/M2, Q2W (OVER 46 HOURS)
     Route: 042
  4. IRINOTECAN [Suspect]
     Active Substance: IRINOTECAN
     Indication: Cholangiocarcinoma
     Dosage: Q2W (180 MG/M2, Q2W (OVER 90 MIN))
     Route: 042
  5. BEVACIZUMAB [Suspect]
     Active Substance: BEVACIZUMAB
     Indication: Cholangiocarcinoma
     Dosage: Q2W (5 MG/KG, Q2W (OVER 90 MIN)
     Route: 065

REACTIONS (1)
  - Gastrointestinal haemorrhage [Unknown]
